FAERS Safety Report 4555310-4 (Version None)
Quarter: 2004Q4

REPORT INFORMATION
  Report Type: 
  Country: None (occurrence: None)
  Receive Date: 20041227
  Receipt Date: 20040727
  Transmission Date: 20050328
  Serious: Yes (Death, Hospitalization)
  Sender: FDA-Public Use
  Company Number: US075240

PATIENT
  Age: 76 Year
  Sex: Male
  Weight: 89.9 kg

DRUGS (15)
  1. ARANESP [Suspect]
     Indication: ANAEMIA OF MALIGNANT DISEASE
     Dosage: 300 MCG, 1 IN 2 WEEKS, SC
     Route: 058
     Dates: start: 20040213
  2. CARBOPLATIN [Concomitant]
  3. ETOPOSIDE [Concomitant]
  4. VINORELBINE [Concomitant]
  5. DOLASETRON MESYLATE [Concomitant]
  6. DEXAMETHASONE [Concomitant]
  7. LEVOXYL [Concomitant]
  8. GLIPIZIDE [Concomitant]
  9. GLIBENCLAMIDE [Concomitant]
  10. CALCIUM GLUCONATE [Concomitant]
  11. ALBUTEROL SULFATE [Concomitant]
  12. WARFARIN SODIUM [Concomitant]
  13. FUORSEMIDE [Concomitant]
  14. PREDNISONE [Concomitant]
  15. NEULASTA [Concomitant]

REACTIONS (4)
  - ARRHYTHMIA [None]
  - ASTHENIA [None]
  - DEATH [None]
  - DRUG INEFFECTIVE [None]
